FAERS Safety Report 6226095-0 (Version None)
Quarter: 2009Q2

REPORT INFORMATION
  Report Type: 
  Country: None (occurrence: None)
  Receive Date: 20090612
  Receipt Date: 20090506
  Transmission Date: 20091009
  Serious: No
  Sender: FDA-Public Use
  Company Number: US-ABBOTT-09P-163-0572345-00

PATIENT
  Sex: Female
  Weight: 58.112 kg

DRUGS (3)
  1. HUMIRA [Suspect]
     Indication: RHEUMATOID ARTHRITIS
     Route: 058
     Dates: start: 20080701
  2. PREDNISONE [Concomitant]
     Indication: RHEUMATOID ARTHRITIS
     Dates: start: 20090401
  3. NADUTONE [Concomitant]
     Indication: PAIN

REACTIONS (5)
  - ARTHRALGIA [None]
  - HEADACHE [None]
  - PAIN [None]
  - RHEUMATOID ARTHRITIS [None]
  - RHEUMATOID FACTOR INCREASED [None]
